FAERS Safety Report 25988109 (Version 1)
Quarter: 2025Q4

REPORT INFORMATION
  Report Type: Spontaneous
  Country: QA (occurrence: QA)
  Receive Date: 20251103
  Receipt Date: 20251103
  Transmission Date: 20260118
  Serious: Yes (Other)
  Sender: Onesource Specialty Pharma
  Company Number: QA-STRIDES ARCOLAB LIMITED-2025OS001093

PATIENT
  Sex: Female

DRUGS (1)
  1. AMPICILLIN [Suspect]
     Active Substance: AMPICILLIN
     Indication: Listeriosis
     Dosage: UNK
     Route: 042

REACTIONS (2)
  - Stillbirth [Unknown]
  - Maternal exposure during pregnancy [Unknown]
